FAERS Safety Report 5065166-1 (Version None)
Quarter: 2006Q3

REPORT INFORMATION
  Report Type: 
  Country: None (occurrence: None)
  Receive Date: 20060706
  Receipt Date: 20050901
  Transmission Date: 20061208
  Serious: Yes (Other)
  Sender: FDA-Public Use
  Company Number: 20313

PATIENT
  Sex: Male
  Weight: 66.6788 kg

DRUGS (2)
  1. MIDAZOLAM HCL [Suspect]
     Indication: BRONCHOSCOPY
     Dosage: 3.5 MG/X 1/IV
     Route: 042
     Dates: start: 20050901
  2. 125 MCG FENTANYL [Concomitant]

REACTIONS (1)
  - DRUG INEFFECTIVE [None]
